FAERS Safety Report 4928660-7 (Version None)
Quarter: 2006Q1

REPORT INFORMATION
  Report Type: 
  Country: None (occurrence: None)
  Receive Date: 20060227
  Receipt Date: 20060227
  Transmission Date: 20060701
  Serious: No
  Sender: FDA-Public Use
  Company Number: None

PATIENT
  Sex: Male

DRUGS (2)
  1. TREES/GRASSES/CAT/DOG HAIR-1:1,100 W/V-RX 268037 [Suspect]
     Dosage: 0.4 ML SUBCUTANEOUS
     Route: 058
  2. WEEDS.MOLDS/ROACH/MITES-1:2000 W/V -RX 290151 [Suspect]
     Dosage: 0.2 ML SUBCUTONEOUS
     Route: 058

REACTIONS (2)
  - DYSPHAGIA [None]
  - DYSPNOEA [None]
